FAERS Safety Report 9656328 (Version 1)
Quarter: 2013Q4

REPORT INFORMATION
  Report Type: Spontaneous
  Country: US (occurrence: US)
  Receive Date: 20131030
  Receipt Date: 20131030
  Transmission Date: 20140711
  Serious: No
  Sender: FDA-Public Use
  Company Number: US-PFIZER INC-2013307405

PATIENT
  Age: 62 Year
  Sex: Male

DRUGS (1)
  1. INLYTA [Suspect]
     Indication: MALIGNANT URINARY TRACT NEOPLASM
     Dosage: 5 MG, 2X/DAY
     Dates: start: 201308, end: 20130925

REACTIONS (4)
  - Hypophagia [Unknown]
  - Dehydration [Unknown]
  - Blood calcium increased [Unknown]
  - General physical health deterioration [Unknown]
